FAERS Safety Report 5324033-6 (Version None)
Quarter: 2007Q2

REPORT INFORMATION
  Report Type: 
  Country: None (occurrence: None)
  Receive Date: 20070509
  Receipt Date: 20070509
  Transmission Date: 20071010
  Serious: Yes (Hospitalization)
  Sender: FDA-Public Use
  Company Number: None

PATIENT
  Age: 39 Year
  Sex: Male
  Weight: 80.18 kg

DRUGS (7)
  1. CARMUSTINE [Suspect]
     Indication: NON-HODGKIN'S LYMPHOMA
     Dosage: 288MG DAILY FOR 3 DAYS IV DRIP
     Route: 041
     Dates: start: 20070403, end: 20070405
  2. ETOPOSIDE [Suspect]
     Dosage: 4488MG ONCE IV DRIP
     Route: 041
     Dates: start: 20070406, end: 20070406
  3. ATRIPLA [Concomitant]
  4. ATIVAN [Concomitant]
  5. AMBIEN [Concomitant]
  6. NEUPOGEN [Concomitant]
  7. GM-CSF [Concomitant]

REACTIONS (1)
  - WHITE BLOOD CELL COUNT DECREASED [None]
